FAERS Safety Report 25577190 (Version 1)
Quarter: 2025Q3

REPORT INFORMATION
  Report Type: Spontaneous
  Country: US (occurrence: US)
  Receive Date: 20250718
  Receipt Date: 20250718
  Transmission Date: 20251020
  Serious: Yes (Hospitalization, Other)
  Sender: APOTEX
  Company Number: US-APOTEX-2025AP010225

PATIENT
  Age: 40 Year
  Sex: Male

DRUGS (3)
  1. DILTIAZEM [Suspect]
     Active Substance: DILTIAZEM
     Indication: Product used for unknown indication
     Route: 048
  2. METOPROLOL [Suspect]
     Active Substance: METOPROLOL
     Indication: Product used for unknown indication
     Route: 048
  3. FLUOXETINE [Suspect]
     Active Substance: FLUOXETINE HYDROCHLORIDE
     Indication: Product used for unknown indication
     Route: 048

REACTIONS (12)
  - Cardiogenic shock [Unknown]
  - Haemorrhagic transformation stroke [Unknown]
  - Metabolic acidosis [Unknown]
  - Hypertransaminasaemia [Unknown]
  - Urine output decreased [Unknown]
  - Hypoperfusion [Unknown]
  - Right ventricular dysfunction [Unknown]
  - Left ventricular dysfunction [Unknown]
  - Overdose [Unknown]
  - Toxicity to various agents [Unknown]
  - Cerebral haemorrhage [Unknown]
  - Bradycardia [Unknown]
